FAERS Safety Report 24548355 (Version 1)
Quarter: 2024Q4

REPORT INFORMATION
  Report Type: Spontaneous
  Country: US (occurrence: US)
  Receive Date: 20241025
  Receipt Date: 20241025
  Transmission Date: 20250115
  Serious: Yes (Other)
  Sender: ACCORD
  Company Number: US-MLMSERVICE-20241011-PI185593-00306-1

PATIENT
  Age: 55 Year
  Sex: Male

DRUGS (4)
  1. TACROLIMUS [Suspect]
     Active Substance: TACROLIMUS
     Indication: Dermatitis atopic
     Dosage: CHRONIC USE: 4 YEARS OF DAILY TOPICAL TACROLIMUS 0.1% TO THE HANDS
     Route: 061
  2. DUPILUMAB [Concomitant]
     Active Substance: DUPILUMAB
     Indication: Dermatitis atopic
     Dosage: 3 YEARS OF TWICE-MONTHLY DUPILUMAB 300 MG
  3. DUPILUMAB [Concomitant]
     Active Substance: DUPILUMAB
     Indication: Lichenification
     Dosage: 3 YEARS OF TWICE-MONTHLY DUPILUMAB 300 MG
  4. TACROLIMUS [Suspect]
     Active Substance: TACROLIMUS
     Indication: Lichenification
     Dosage: CHRONIC USE: 4 YEARS OF DAILY TOPICAL TACROLIMUS 0.1% TO THE HANDS
     Route: 061

REACTIONS (1)
  - Bowen^s disease [Unknown]
